FAERS Safety Report 6594730-3 (Version None)
Quarter: 2010Q1

REPORT INFORMATION
  Report Type: 
  Country: None (occurrence: None)
  Receive Date: 20100222
  Receipt Date: 20100209
  Transmission Date: 20100710
  Serious: Yes (Death)
  Sender: FDA-Public Use
  Company Number: US-B.I. PHARMACEUTICALS,INC./RIDGEFIELD-2010-DE-00814GD

PATIENT
  Age: 51 Year
  Sex: Female

DRUGS (10)
  1. CLONIDINE [Suspect]
     Route: 065
  2. SERTRALINE HCL [Suspect]
     Route: 065
  3. DULOXETINE [Suspect]
     Route: 065
  4. DOXEPIN HCL [Suspect]
     Route: 065
  5. CLONAZEPAM [Suspect]
     Route: 065
  6. UNKNOWN DRUG [Suspect]
     Route: 065
  7. DIPHENHYDRAMINE [Suspect]
     Route: 065
  8. SILDENAFIL CITRATE [Suspect]
     Route: 065
  9. OXYBUTYNIN [Suspect]
     Route: 065
  10. ESCITALOPRAM [Suspect]
     Route: 065

REACTIONS (1)
  - DEATH [None]
